FAERS Safety Report 6818140-6 (Version None)
Quarter: 2010Q3

REPORT INFORMATION
  Report Type: 
  Country: None (occurrence: None)
  Receive Date: 20100706
  Receipt Date: 20100628
  Transmission Date: 20110219
  Serious: Yes (Hospitalization)
  Sender: FDA-Public Use
  Company Number: FR-PFIZER INC-2010079981

PATIENT
  Age: 46 Year
  Sex: Female

DRUGS (5)
  1. TAHOR [Suspect]
     Indication: DYSLIPIDAEMIA
     Dosage: 20 MG, UNK
     Route: 048
     Dates: start: 20050801, end: 20060401
  2. TAHOR [Suspect]
     Dosage: UNK
     Dates: start: 20071201, end: 20100301
  3. LUTENYL [Concomitant]
  4. ESTREVA [Concomitant]
  5. LEVOTHYROXINE SODIUM [Concomitant]

REACTIONS (2)
  - AUTOIMMUNE HEPATITIS [None]
  - HEPATITIS [None]
